FAERS Safety Report 14458639 (Version 1)
Quarter: 2018Q1

REPORT INFORMATION
  Report Type: Spontaneous
  Country: US (occurrence: US)
  Receive Date: 20180130
  Receipt Date: 20180130
  Transmission Date: 20180509
  Serious: No
  Sender: FDA-Public Use
  Company Number: US-BAUSCH-BL-2017-019746

PATIENT
  Age: 70 Year
  Sex: Male
  Weight: 79.45 kg

DRUGS (1)
  1. ZYLET [Suspect]
     Active Substance: LOTEPREDNOL ETABONATE\TOBRAMYCIN
     Indication: POSTOPERATIVE CARE
     Route: 061
     Dates: start: 2013

REACTIONS (2)
  - Visual impairment [Recovering/Resolving]
  - Off label use [Not Recovered/Not Resolved]

NARRATIVE: CASE EVENT DATE: 201705
